FAERS Safety Report 6357509-3 (Version None)
Quarter: 2009Q3

REPORT INFORMATION
  Report Type: 
  Country: None (occurrence: None)
  Receive Date: 20090916
  Receipt Date: 20090905
  Transmission Date: 20100115
  Serious: Yes (Other)
  Sender: FDA-Public Use
  Company Number: AU-JNJFOC-20090902881

PATIENT
  Sex: Male

DRUGS (3)
  1. REMICADE [Suspect]
     Indication: PSORIASIS
     Dosage: HAD BEEN ON INFLIXIMAB FOR 1 YEAR
     Route: 042
  2. METHOTREXATE [Concomitant]
  3. CARDIAC MEDICATION [Concomitant]

REACTIONS (1)
  - SQUAMOUS CELL CARCINOMA [None]
